FAERS Safety Report 12154859 (Version 1)
Quarter: 2016Q1

REPORT INFORMATION
  Report Type: Spontaneous
  Country: US (occurrence: None)
  Receive Date: 20160304
  Receipt Date: 20160304
  Transmission Date: 20160526
  Serious: Yes (Hospitalization)
  Sender: FDA-Public Use
  Company Number: None

PATIENT
  Age: 55 Year
  Sex: Female
  Weight: 93.9 kg

DRUGS (24)
  1. VENTOLIN HFA [Concomitant]
     Active Substance: ALBUTEROL SULFATE
  2. TOPIRAMATE. [Concomitant]
     Active Substance: TOPIRAMATE
  3. CLONIDINE HCL [Concomitant]
     Active Substance: CLONIDINE HYDROCHLORIDE
  4. BISOPROLOL FUMARATE. [Concomitant]
     Active Substance: BISOPROLOL FUMARATE
  5. CARAFATE [Concomitant]
     Active Substance: SUCRALFATE
  6. VERAPAMIL ER [Concomitant]
     Active Substance: VERAPAMIL HYDROCHLORIDE
  7. LORATADINE. [Concomitant]
     Active Substance: LORATADINE
  8. SPIRINOLACTONE [Concomitant]
  9. FENOFIBRATE. [Concomitant]
     Active Substance: FENOFIBRATE
  10. CLOPIDOGREL [Concomitant]
     Active Substance: CLOPIDOGREL BISULFATE
  11. ZOLPIDEM ER [Concomitant]
     Active Substance: ZOLPIDEM\ZOLPIDEM TARTRATE
  12. ACYCLOVIR. [Concomitant]
     Active Substance: ACYCLOVIR
  13. TIZANIDINE. [Concomitant]
     Active Substance: TIZANIDINE
  14. ALEMTUZUMAB [Suspect]
     Active Substance: ALEMTUZUMAB
     Indication: MULTIPLE SCLEROSIS
     Route: 042
     Dates: start: 20150706, end: 20150708
  15. SOLU-MEDROL [Suspect]
     Active Substance: METHYLPREDNISOLONE SODIUM SUCCINATE
     Route: 042
     Dates: start: 20150706, end: 20150708
  16. TRAMADOL. [Concomitant]
     Active Substance: TRAMADOL
  17. FAMOTIDINE. [Concomitant]
     Active Substance: FAMOTIDINE
  18. BACLOFEN. [Concomitant]
     Active Substance: BACLOFEN
  19. CYANOCOBALAMIN (VITAMIN B12) [Concomitant]
  20. VESICARE [Concomitant]
     Active Substance: SOLIFENACIN SUCCINATE
  21. PROMORHAZINE [Concomitant]
  22. HYDROXYZINE HCL [Concomitant]
     Active Substance: HYDROXYZINE HYDROCHLORIDE
  23. ROSUVASTATIN [Concomitant]
     Active Substance: ROSUVASTATIN
  24. AMITIZA [Concomitant]
     Active Substance: LUBIPROSTONE

REACTIONS (5)
  - Dehydration [None]
  - Urinary tract infection [None]
  - Hypokalaemia [None]
  - Hallucination [None]
  - Back pain [None]

NARRATIVE: CASE EVENT DATE: 20160224
